FAERS Safety Report 4849143-9 (Version None)
Quarter: 2005Q4

REPORT INFORMATION
  Report Type: 
  Country: None (occurrence: None)
  Receive Date: 20051209
  Receipt Date: 20050414
  Transmission Date: 20060501
  Serious: Yes (Death, Hospitalization, Other)
  Sender: FDA-Public Use
  Company Number: US-MERCK-0504USA02301

PATIENT
  Age: 50 Year
  Sex: Male

DRUGS (8)
  1. VIOXX [Suspect]
     Route: 048
  2. PRINIVIL [Concomitant]
     Route: 065
     Dates: start: 20000322
  3. PRINIVIL [Concomitant]
     Route: 065
     Dates: start: 20011107
  4. ASPIRIN [Suspect]
     Route: 065
  5. LIBRIUM [Concomitant]
     Route: 065
  6. KEFLEX [Concomitant]
     Route: 065
     Dates: start: 20040610
  7. LEVAQUIN [Concomitant]
     Route: 065
     Dates: start: 20040610
  8. ALCOHOL [Suspect]
     Route: 065

REACTIONS (9)
  - ALCOHOLISM [None]
  - DRUG WITHDRAWAL CONVULSIONS [None]
  - GASTROINTESTINAL HAEMORRHAGE [None]
  - HYPERTENSIVE HEART DISEASE [None]
  - INJURY [None]
  - JOINT ABSCESS [None]
  - NERVOUS SYSTEM DISORDER [None]
  - RHINITIS ALLERGIC [None]
  - SHOCK [None]
